FAERS Safety Report 4445775-0 (Version None)
Quarter: 2004Q3

REPORT INFORMATION
  Report Type: 
  Country: None (occurrence: None)
  Receive Date: 20040910
  Receipt Date: 20040903
  Transmission Date: 20050211
  Serious: Yes (Hospitalization)
  Sender: FDA-Public Use
  Company Number: 200416703US

PATIENT
  Age: 8 Year
  Sex: Female
  Weight: 56.8 kg

DRUGS (1)
  1. DDAVP [Suspect]
     Dosage: DOSE: 0.2 X 42 TABLETS
     Dates: start: 20040902, end: 20040902

REACTIONS (2)
  - ABDOMINAL PAIN [None]
  - SUICIDE ATTEMPT [None]
